FAERS Safety Report 6616081-0 (Version None)
Quarter: 2010Q1

REPORT INFORMATION
  Report Type: 
  Country: None (occurrence: None)
  Receive Date: 20100305
  Receipt Date: 20100222
  Transmission Date: 20100710
  Serious: Yes (Hospitalization, Other)
  Sender: FDA-Public Use
  Company Number: PHEH2007US12470

PATIENT
  Sex: Female

DRUGS (16)
  1. AREDIA [Suspect]
     Indication: OSTEITIS DEFORMANS
  2. PAMIDRONATE DISODIUM [Suspect]
  3. ALLOPURINOL [Concomitant]
  4. AMIODARONE [Concomitant]
  5. PLAVIX [Concomitant]
  6. DIGOXIN [Concomitant]
  7. COLACE [Concomitant]
  8. ADVAIR DISKUS 100/50 [Concomitant]
  9. LASIX [Concomitant]
  10. SYNTHROID [Concomitant]
  11. NYSTATIN [Concomitant]
  12. BENICAR [Concomitant]
  13. PROTONIX [Concomitant]
  14. ACTOS [Concomitant]
  15. K-DUR [Concomitant]
  16. TRAVATAN [Concomitant]

REACTIONS (57)
  - ABDOMINAL DISCOMFORT [None]
  - ACQUIRED DIAPHRAGMATIC EVENTRATION [None]
  - ANAEMIA [None]
  - ANHEDONIA [None]
  - ANXIETY [None]
  - AORTIC ARTERIOSCLEROSIS [None]
  - ARTHRALGIA [None]
  - ASPIRATION JOINT [None]
  - ATELECTASIS [None]
  - BONE DISORDER [None]
  - BREAST OEDEMA [None]
  - CARDIAC ARREST [None]
  - CARDIAC PACEMAKER INSERTION [None]
  - DEFORMITY [None]
  - DEVICE RELATED INFECTION [None]
  - DIABETES MELLITUS [None]
  - DIARRHOEA [None]
  - DISCOMFORT [None]
  - EMOTIONAL DISTRESS [None]
  - ENDODONTIC PROCEDURE [None]
  - FISTULA [None]
  - GLOSSODYNIA [None]
  - GOUT [None]
  - HYPOPHAGIA [None]
  - HYPOTENSION [None]
  - HYPOTHYROIDISM [None]
  - INFECTION [None]
  - INFECTION SUSCEPTIBILITY INCREASED [None]
  - INJURY [None]
  - INSOMNIA [None]
  - IRRITABLE BOWEL SYNDROME [None]
  - LEFT VENTRICULAR HYPERTROPHY [None]
  - LEUKOCYTOSIS [None]
  - LIFE EXPECTANCY SHORTENED [None]
  - NASAL ULCER [None]
  - OEDEMA PERIPHERAL [None]
  - OSTEOMYELITIS [None]
  - OSTEONECROSIS [None]
  - PAIN [None]
  - PAIN IN JAW [None]
  - PHYSICAL DISABILITY [None]
  - PLEURAL EFFUSION [None]
  - POLYNEUROPATHY [None]
  - PULMONARY VALVE INCOMPETENCE [None]
  - RENAL FAILURE [None]
  - RHEUMATOID ARTHRITIS [None]
  - SINUS BRADYCARDIA [None]
  - SLEEP APNOEA SYNDROME [None]
  - SWELLING [None]
  - SYNCOPE [None]
  - THROMBOSIS [None]
  - TOOTH EXTRACTION [None]
  - TOOTH INFECTION [None]
  - TRICUSPID VALVE INCOMPETENCE [None]
  - VERTIGO [None]
  - WHEEZING [None]
  - WOUND INFECTION STAPHYLOCOCCAL [None]
